FAERS Safety Report 13864270 (Version 2)
Quarter: 2017Q3

REPORT INFORMATION
  Report Type: Report from Study
  Country: IT (occurrence: IT)
  Receive Date: 20170814
  Receipt Date: 20170818
  Transmission Date: 20171127
  Serious: Yes (Death, Other)
  Sender: FDA-Public Use
  Company Number: IT-TEVA-794836ACC

PATIENT
  Age: 63 Year
  Sex: Male
  Weight: 65 kg

DRUGS (2)
  1. BACTRIM [Concomitant]
     Active Substance: SULFAMETHOXAZOLE\TRIMETHOPRIM
     Indication: PROPHYLAXIS
     Route: 048
  2. VALGANCICLOVIR. [Suspect]
     Active Substance: VALGANCICLOVIR
     Indication: PROPHYLAXIS
     Dosage: 450 MILLIGRAM DAILY;
     Route: 048

REACTIONS (10)
  - Conjunctival haemorrhage [Unknown]
  - Thrombocytopenia [Fatal]
  - Lacrimal disorder [Unknown]
  - Rhinitis [Unknown]
  - Loss of consciousness [Unknown]
  - Eye pain [Unknown]
  - Necrosis [Unknown]
  - Bradycardia [Unknown]
  - Facial pain [Unknown]
  - Cardiac arrest [Unknown]

NARRATIVE: CASE EVENT DATE: 20170719
